FAERS Safety Report 9011189 (Version 2)
Quarter: 2013Q1

REPORT INFORMATION
  Report Type: Report from Study
  Country: US (occurrence: US)
  Receive Date: 20130109
  Receipt Date: 20130116
  Transmission Date: 20140127
  Serious: Yes (Hospitalization)
  Sender: FDA-Public Use
  Company Number: US-ACTELION-A-NJ2012-77258

PATIENT
  Age: 62 Year
  Sex: Female

DRUGS (4)
  1. TRACLEER [Suspect]
     Indication: PULMONARY ARTERIAL HYPERTENSION
     Dosage: 62.5 MG, BID
     Route: 048
     Dates: start: 20121014, end: 20121018
  2. COUMADIN [Suspect]
  3. LASIX [Suspect]
  4. SILDENAFIL [Concomitant]

REACTIONS (6)
  - Blood potassium increased [Recovered/Resolved]
  - Renal failure [Recovered/Resolved]
  - Nausea [None]
  - Constipation [None]
  - Headache [None]
  - Coagulopathy [None]
